FAERS Safety Report 11267939 (Version 1)
Quarter: 2015Q3

REPORT INFORMATION
  Report Type: Spontaneous
  Country: US (occurrence: US)
  Receive Date: 20150713
  Receipt Date: 20150713
  Transmission Date: 20151125
  Serious: No
  Sender: FDA-Public Use
  Company Number: US-MILLENNIUM PHARMACEUTICALS, INC.-2014MPI000518

PATIENT
  Sex: Male
  Weight: 80.3 kg

DRUGS (2)
  1. VELCADE [Suspect]
     Active Substance: BORTEZOMIB
     Indication: NON-HODGKIN^S LYMPHOMA
     Dosage: 2.56 MG, UNK
     Route: 058
     Dates: start: 20140204, end: 20140211
  2. VELCADE [Suspect]
     Active Substance: BORTEZOMIB
     Dosage: 2.54 MG, UNK
     Route: 042
     Dates: start: 20140214

REACTIONS (3)
  - Injection site dryness [Recovering/Resolving]
  - Injection site erythema [Recovering/Resolving]
  - Product use issue [Unknown]
